FAERS Safety Report 12178543 (Version 1)
Quarter: 2016Q1

REPORT INFORMATION
  Report Type: Spontaneous
  Country: US (occurrence: US)
  Receive Date: 20160315
  Receipt Date: 20160315
  Transmission Date: 20160526
  Serious: Yes (Other)
  Sender: FDA-Public Use
  Company Number: US-ASTRAZENECA-2016SE26339

PATIENT
  Sex: Female

DRUGS (1)
  1. DAPAGLIFLOZIN [Suspect]
     Active Substance: DAPAGLIFLOZIN
     Route: 048

REACTIONS (7)
  - Drug ineffective [Unknown]
  - Cerebrovascular accident [Unknown]
  - Starvation [Unknown]
  - Angina pectoris [Unknown]
  - Myocardial infarction [Unknown]
  - Blood glucose decreased [Unknown]
  - Hunger [Unknown]
